FAERS Safety Report 8232141-5 (Version None)
Quarter: 2012Q1

REPORT INFORMATION
  Report Type: 
  Country: None (occurrence: None)
  Receive Date: 20120323
  Receipt Date: 20120309
  Transmission Date: 20120608
  Serious: Yes (Other)
  Sender: FDA-Public Use
  Company Number: JP-ROCHE-1043610

PATIENT
  Age: 7 Year
  Sex: Female

DRUGS (5)
  1. CLARITHROMYCIN [Concomitant]
     Route: 048
  2. TAMIFLU [Suspect]
     Indication: PRODUCT USED FOR UNKNOWN INDICATION
     Route: 048
     Dates: start: 20120221, end: 20120221
  3. MUCODYNE [Concomitant]
     Route: 048
  4. LEFTOSE [Concomitant]
     Dosage: AFTER EVERY MEAL
     Route: 048
  5. ACETAMINOPHEN [Concomitant]
     Dosage: DOSAGE IS UNCERTAIN. TAKEN AS NEEDED.
     Route: 048

REACTIONS (2)
  - PALLOR [None]
  - DEPRESSED LEVEL OF CONSCIOUSNESS [None]
